FAERS Safety Report 9500797 (Version 1)
Quarter: 2013Q3

REPORT INFORMATION
  Report Type: Spontaneous
  Country: US (occurrence: US)
  Receive Date: 20130905
  Receipt Date: 20130905
  Transmission Date: 20140515
  Serious: Yes (Hospitalization)
  Sender: FDA-Public Use
  Company Number: US-BAYER-2013-106906

PATIENT
  Sex: 0

DRUGS (1)
  1. ALKA-SELTZER ORIGINAL [Suspect]
     Indication: DYSPEPSIA
     Dosage: UNK

REACTIONS (5)
  - Local swelling [Recovered/Resolved]
  - Dizziness [None]
  - Feeling jittery [None]
  - Fatigue [None]
  - Drug ineffective [None]
